FAERS Safety Report 8775199 (Version 4)
Quarter: 2013Q1

REPORT INFORMATION
  Report Type: Report from Study
  Country: US (occurrence: US)
  Receive Date: 20120907
  Receipt Date: 20130115
  Transmission Date: 20140127
  Serious: Yes (Hospitalization, Other)
  Sender: FDA-Public Use
  Company Number: US-ASTELLAS-2012US007526

PATIENT
  Age: 68 Year
  Sex: Female
  Weight: 65 kg

DRUGS (4)
  1. ERLOTINIB TABLET [Suspect]
     Indication: LUNG ADENOCARCINOMA
     Dosage: 100 MG, UID/QD
     Route: 048
     Dates: start: 20120815, end: 20120823
  2. ERLOTINIB TABLET [Suspect]
     Dosage: 50 MG, UID/QD
     Route: 048
     Dates: end: 20121210
  3. AZD6244 HYDROGEN SULFATE [Suspect]
     Indication: LUNG ADENOCARCINOMA
     Dosage: 150 MG, UID/QD
     Route: 048
     Dates: start: 20120815, end: 20120823
  4. AZD6244 HYDROGEN SULFATE [Suspect]
     Dosage: 75 MG, UID/QD
     Route: 048
     Dates: end: 20121210

REACTIONS (12)
  - Incorrect dose administered [Unknown]
  - Chronic obstructive pulmonary disease [Recovering/Resolving]
  - Bile duct obstruction [Unknown]
  - Confusional state [Recovering/Resolving]
  - Hyponatraemia [Unknown]
  - Liver function test abnormal [Unknown]
  - Body temperature increased [Recovering/Resolving]
  - Dehydration [Unknown]
  - Abdominal pain [Unknown]
  - Muscular weakness [Recovering/Resolving]
  - Headache [Not Recovered/Not Resolved]
  - Urinary tract infection [Not Recovered/Not Resolved]
